FAERS Safety Report 5104070-7 (Version None)
Quarter: 2006Q3

REPORT INFORMATION
  Report Type: 
  Country: None (occurrence: None)
  Receive Date: 20060911
  Receipt Date: 20060825
  Transmission Date: 20061208
  Serious: Yes (Hospitalization)
  Sender: FDA-Public Use
  Company Number: 2006EU002461

PATIENT
  Sex: Male

DRUGS (7)
  1. PROGRAF [Suspect]
     Indication: RENAL TRANSPLANT
     Dosage: 2 MG, ORAL
     Route: 048
  2. ASPIRIN [Concomitant]
  3. OMEPRAZOLE [Concomitant]
  4. LASIX [Concomitant]
  5. VALACYCLOVIR HCL [Concomitant]
  6. CELLCEPT [Concomitant]
  7. CORTICOSTEROIDS [Concomitant]

REACTIONS (6)
  - BLOOD BICARBONATE INCREASED [None]
  - BLOOD PH INCREASED [None]
  - HYPOXIA [None]
  - LUNG DISORDER [None]
  - OBLITERATIVE BRONCHIOLITIS [None]
  - RESPIRATORY DISTRESS [None]
